FAERS Safety Report 10177465 (Version 8)
Quarter: 2014Q4

REPORT INFORMATION
  Report Type: Report from Study
  Country: CA (occurrence: CA)
  Receive Date: 20140516
  Receipt Date: 20141022
  Transmission Date: 20150528
  Serious: Yes (Hospitalization, Other)
  Sender: FDA-Public Use
  Company Number: PHHY2012CA073848

PATIENT
  Age: 49 Year
  Sex: Male

DRUGS (1)
  1. SANDOSTATIN LAR DEPOT [Suspect]
     Active Substance: OCTREOTIDE ACETATE
     Indication: NEUROENDOCRINE TUMOUR
     Dosage: 30 MG, EVERY 4 WEEKS
     Route: 030
     Dates: start: 20120405

REACTIONS (38)
  - Blood pressure increased [Unknown]
  - Sunburn [Unknown]
  - Stress [Unknown]
  - Underdose [Unknown]
  - Headache [Unknown]
  - Haemophilia [Unknown]
  - Gastrointestinal disorder [Unknown]
  - Micturition urgency [Unknown]
  - Dizziness [Unknown]
  - Dry mouth [Unknown]
  - Anxiety [Unknown]
  - Injection site haemorrhage [Unknown]
  - Injection site mass [Unknown]
  - Upper extremity mass [Unknown]
  - Dry eye [Unknown]
  - Vomiting [Unknown]
  - Pollakiuria [Unknown]
  - Needle issue [Unknown]
  - Fatigue [Unknown]
  - Malaise [Unknown]
  - Bone neoplasm [Unknown]
  - Pleural effusion [Unknown]
  - Peripheral swelling [Unknown]
  - Venous injury [Unknown]
  - Flushing [Unknown]
  - Decreased appetite [Unknown]
  - Pneumonia [Unknown]
  - Hearing impaired [Unknown]
  - Rhinorrhoea [Unknown]
  - Nausea [Unknown]
  - Heart rate irregular [Unknown]
  - Injection site pain [Unknown]
  - Heart rate increased [Unknown]
  - Erythema [Unknown]
  - Dry skin [Unknown]
  - Myalgia [Unknown]
  - Sleep disorder [Unknown]
  - Abdominal pain upper [Unknown]

NARRATIVE: CASE EVENT DATE: 20140504
